FAERS Safety Report 9659287 (Version 1)
Quarter: 2013Q4

REPORT INFORMATION
  Report Type: Spontaneous
  Country: US (occurrence: US)
  Receive Date: 20131031
  Receipt Date: 20131031
  Transmission Date: 20140711
  Serious: Yes (Congenital Anomaly)
  Sender: FDA-Public Use
  Company Number: US-009507513-1310USA013982

PATIENT
  Sex: Male
  Weight: 4.1 kg

DRUGS (4)
  1. ISENTRESS [Suspect]
     Dosage: 800 MG/DAY
     Route: 064
  2. PREZISTA [Suspect]
     Dosage: 800 MG/QD
     Route: 064
  3. NORVIR [Suspect]
     Dosage: 100 MG/DAY
     Route: 064
  4. SELZENTRY [Suspect]
     Dosage: 300 MG/DAY
     Route: 064

REACTIONS (6)
  - Congenital bladder anomaly [Unknown]
  - Congenital hydronephrosis [Unknown]
  - Congenital cystic kidney disease [Unknown]
  - Congenital ureteric anomaly [Unknown]
  - Congenital vesicoureteric reflux [Unknown]
  - Foetal exposure during pregnancy [Recovered/Resolved]
